FAERS Safety Report 5441614-X (Version None)
Quarter: 2007Q3

REPORT INFORMATION
  Report Type: 
  Country: None (occurrence: None)
  Receive Date: 20070904
  Receipt Date: 20070827
  Transmission Date: 20080115
  Serious: No
  Sender: FDA-Public Use
  Company Number: US-BAXTER-2007BH004052

PATIENT
  Age: 73 Year
  Sex: Male
  Weight: 40 kg

DRUGS (26)
  1. GAMMAGARD S/D [Suspect]
     Indication: MYASTHENIA GRAVIS
     Route: 042
     Dates: start: 20070428, end: 20070502
  2. GAMMAGARD S/D [Suspect]
     Indication: INTENTIONAL DRUG MISUSE
     Route: 042
     Dates: start: 20070428, end: 20070502
  3. GAMMAGARD S/D [Suspect]
     Route: 042
     Dates: start: 20070428, end: 20070502
  4. GAMMAGARD S/D [Suspect]
     Route: 042
     Dates: start: 20070428, end: 20070502
  5. GAMMAGARD S/D [Suspect]
     Route: 042
     Dates: start: 20070428, end: 20070502
  6. GAMMAGARD S/D [Suspect]
     Route: 042
     Dates: start: 20070428, end: 20070502
  7. GAMMAGARD S/D [Suspect]
     Route: 042
     Dates: start: 20070428, end: 20070502
  8. GAMMAGARD S/D [Suspect]
     Route: 042
     Dates: start: 20070428, end: 20070502
  9. XOPENEX [Concomitant]
     Indication: DRUG USE FOR UNKNOWN INDICATION
     Route: 055
  10. XOPENEX [Concomitant]
     Route: 055
  11. QVAR 40 [Concomitant]
     Indication: DRUG USE FOR UNKNOWN INDICATION
     Route: 055
  12. IPRATROPIUM BROMIDE [Concomitant]
     Indication: DRUG USE FOR UNKNOWN INDICATION
     Route: 055
  13. FORADIL [Concomitant]
     Indication: DRUG USE FOR UNKNOWN INDICATION
     Route: 055
  14. KLOR-CON [Concomitant]
     Indication: DRUG USE FOR UNKNOWN INDICATION
     Route: 065
  15. HYTRIN [Concomitant]
     Indication: DRUG USE FOR UNKNOWN INDICATION
     Route: 048
  16. ECOTRIN [Concomitant]
     Indication: DRUG USE FOR UNKNOWN INDICATION
     Route: 065
  17. BUMEX [Concomitant]
     Indication: DRUG USE FOR UNKNOWN INDICATION
     Route: 065
  18. ZANTAC 150 [Concomitant]
     Indication: DRUG USE FOR UNKNOWN INDICATION
     Route: 065
  19. VITAMIN B COMPLEX CAP [Concomitant]
     Indication: DRUG USE FOR UNKNOWN INDICATION
     Route: 065
  20. ASCORBIC ACID [Concomitant]
     Indication: DRUG USE FOR UNKNOWN INDICATION
     Dosage: DOSE UNIT:UNKNOWN
     Route: 065
  21. VITAMIN B-12 [Concomitant]
     Indication: DRUG USE FOR UNKNOWN INDICATION
     Dosage: DOSE UNIT:UNKNOWN
     Route: 065
  22. FOLIC ACID [Concomitant]
     Indication: DRUG USE FOR UNKNOWN INDICATION
     Dosage: DOSE UNIT:UNKNOWN
     Route: 065
  23. CALCIUM [Concomitant]
     Indication: DRUG USE FOR UNKNOWN INDICATION
     Dosage: DOSE UNIT:UNKNOWN
     Route: 042
  24. CHROMIUM [Concomitant]
     Indication: DRUG USE FOR UNKNOWN INDICATION
     Dosage: DOSE UNIT:UNKNOWN
     Route: 042
  25. SELENIUM SULFIDE [Concomitant]
     Indication: DRUG USE FOR UNKNOWN INDICATION
     Dosage: DOSE UNIT:UNKNOWN
     Route: 042
  26. ZINC [Concomitant]
     Indication: DRUG USE FOR UNKNOWN INDICATION
     Dosage: DOSE UNIT:UNKNOWN
     Route: 065

REACTIONS (3)
  - ABDOMINAL DISTENSION [None]
  - BLOOD PRESSURE SYSTOLIC INCREASED [None]
  - HEADACHE [None]
